FAERS Safety Report 19347186 (Version 2)
Quarter: 2025Q2

REPORT INFORMATION
  Report Type: Report from Study
  Country: US (occurrence: US)
  Receive Date: 20210531
  Receipt Date: 20250626
  Transmission Date: 20250716
  Serious: Yes (Other)
  Sender: AUROBINDO
  Company Number: US-MLMSERVICE-20210513-2888064-1

PATIENT
  Age: 4 Year
  Sex: Male

DRUGS (1)
  1. METHOTREXATE [Suspect]
     Active Substance: METHOTREXATE
     Indication: Acute lymphocytic leukaemia
     Route: 037

REACTIONS (3)
  - Neurotoxicity [Unknown]
  - Epileptic encephalopathy [Unknown]
  - Lennox-Gastaut syndrome [Unknown]
